FAERS Safety Report 24719836 (Version 1)
Quarter: 2024Q4

REPORT INFORMATION
  Report Type: Spontaneous
  Country: NL (occurrence: NL)
  Receive Date: 20241211
  Receipt Date: 20241211
  Transmission Date: 20250114
  Serious: Yes (Other)
  Sender: ROCHE
  Company Number: NL-ROCHE-10000152951

PATIENT
  Sex: Male

DRUGS (1)
  1. ALECENSA [Suspect]
     Active Substance: ALECTINIB HYDROCHLORIDE
     Indication: Non-Hodgkin^s lymphoma
     Route: 065

REACTIONS (2)
  - Off label use [Unknown]
  - Non-Hodgkin^s lymphoma recurrent [Unknown]
